FAERS Safety Report 18683242 (Version 1)
Quarter: 2020Q4

REPORT INFORMATION
  Report Type: Spontaneous
  Country: AU (occurrence: AU)
  Receive Date: 20201230
  Receipt Date: 20201230
  Transmission Date: 20210114
  Serious: Yes (Life-Threatening, Hospitalization)
  Sender: FDA-Public Use
  Company Number: AU-MYLANLABS-2020M1105057

PATIENT
  Age: 69 Year
  Sex: Male

DRUGS (1)
  1. AMIODARONE [Suspect]
     Active Substance: AMIODARONE
     Indication: ATRIAL FIBRILLATION
     Dosage: CHRONIC TREATMENT
     Route: 065

REACTIONS (4)
  - Hyperthyroidism [Recovered/Resolved]
  - Condition aggravated [Recovered/Resolved]
  - Arteriospasm coronary [Recovered/Resolved]
  - Atrial fibrillation [Recovered/Resolved]
